FAERS Safety Report 13276932 (Version 1)
Quarter: 2017Q1

REPORT INFORMATION
  Report Type: Spontaneous
  Country: US (occurrence: US)
  Receive Date: 20170228
  Receipt Date: 20170228
  Transmission Date: 20170428
  Serious: Yes (Hospitalization)
  Sender: FDA-Public Use
  Company Number: None

PATIENT
  Age: 23 Year
  Sex: Female

DRUGS (3)
  1. CLINDAMYCIN. [Suspect]
     Active Substance: CLINDAMYCIN
  2. PANTOPRAZOLE [Suspect]
     Active Substance: PANTOPRAZOLE SODIUM
  3. AZTREONAM. [Suspect]
     Active Substance: AZTREONAM

REACTIONS (5)
  - Pneumonia [None]
  - Syncope [None]
  - Asthenia [None]
  - Sepsis [None]
  - Clostridium difficile infection [None]

NARRATIVE: CASE EVENT DATE: 20150820
